FAERS Safety Report 7825830-5 (Version None)
Quarter: 2011Q4

REPORT INFORMATION
  Report Type: 
  Country: None (occurrence: None)
  Receive Date: 20111019
  Receipt Date: 20111017
  Transmission Date: 20120403
  Serious: Yes (Death, Hospitalization)
  Sender: FDA-Public Use
  Company Number: FR-ROCHE-801655

PATIENT
  Sex: Female
  Weight: 63 kg

DRUGS (7)
  1. MABTHERA [Suspect]
     Dosage: COURSE:2
     Route: 065
  2. MABTHERA [Suspect]
     Indication: CENTRAL NERVOUS SYSTEM LYMPHOMA
     Dosage: COURSE:1
     Route: 065
  3. FLUCONAZOLE [Concomitant]
  4. MABTHERA [Suspect]
     Dosage: COURSE:3
     Route: 065
  5. PHENOXYMETHYL PENICILLIN [Concomitant]
  6. BACTRIM [Concomitant]
  7. MABTHERA [Suspect]
     Dosage: END OF CHEMOTHERAPY
     Route: 065
     Dates: start: 20110311, end: 20110421

REACTIONS (2)
  - CANDIDIASIS [None]
  - DEATH [None]
